FAERS Safety Report 5771387-2 (Version None)
Quarter: 2008Q2

REPORT INFORMATION
  Report Type: 
  Country: None (occurrence: None)
  Receive Date: 20080613
  Receipt Date: 20080604
  Transmission Date: 20081010
  Serious: No
  Sender: FDA-Public Use
  Company Number: GB-JNJFOC-20080501082

PATIENT
  Sex: Male

DRUGS (8)
  1. INTELENCE [Suspect]
     Route: 048
  2. INTELENCE [Suspect]
     Indication: HIV INFECTION
     Route: 048
  3. TRAMADOL HCL [Concomitant]
  4. KIVEXA [Concomitant]
  5. DIAZEPAM [Concomitant]
  6. DICLOFENAC [Concomitant]
  7. ANTIDEPRESSANTS [Concomitant]
  8. CELECOXIB [Concomitant]

REACTIONS (1)
  - NECK PAIN [None]
